FAERS Safety Report 5144774-3 (Version None)
Quarter: 2006Q4

REPORT INFORMATION
  Report Type: 
  Country: None (occurrence: None)
  Receive Date: 20061107
  Receipt Date: 20061024
  Transmission Date: 20070319
  Serious: Yes (Other)
  Sender: FDA-Public Use
  Company Number: PHHO2006DK17926

PATIENT
  Age: 67 Year

DRUGS (3)
  1. DIOVAN COMP [Suspect]
     Indication: HYPERTENSION
     Dosage: 160MG/25MG
     Route: 048
     Dates: start: 20060524
  2. ATACAND ZID [Concomitant]
  3. CALCIUM CHANNEL BLOCKERS [Concomitant]

REACTIONS (2)
  - BLOOD PRESSURE DIASTOLIC INCREASED [None]
  - BLOOD PRESSURE INCREASED [None]
